FAERS Safety Report 8476660-5 (Version None)
Quarter: 2012Q2

REPORT INFORMATION
  Report Type: 
  Country: None (occurrence: None)
  Receive Date: 20120628
  Receipt Date: 20120619
  Transmission Date: 20120825
  Serious: Yes (Death)
  Sender: FDA-Public Use
  Company Number: US-NOVOPROD-352525

PATIENT
  Age: 14 Year
  Sex: Male
  Weight: 59.5 kg

DRUGS (2)
  1. NORDITROPIN FLEXPRO [Suspect]
     Indication: GROWTH HORMONE DEFICIENCY
     Dosage: 0.3 MG/KG, QW
     Route: 058
     Dates: start: 20040101, end: 20110501
  2. LEVOTHYROXINE [Concomitant]
     Indication: PRODUCT USED FOR UNKNOWN INDICATION

REACTIONS (1)
  - PRIMITIVE NEUROECTODERMAL TUMOUR METASTATIC [None]
